FAERS Safety Report 17982817 (Version 1)
Quarter: 2020Q3

REPORT INFORMATION
  Report Type: Spontaneous
  Country: CA (occurrence: CA)
  Receive Date: 20200706
  Receipt Date: 20200706
  Transmission Date: 20201103
  Serious: Yes (Life-Threatening, Hospitalization)
  Sender: FDA-Public Use
  Company Number: CA-TEVA-2020-CA-1796608

PATIENT
  Age: 6 Year
  Sex: Male
  Weight: 17 kg

DRUGS (32)
  1. DOXORUBICIN HYDROCHLORIDE INJECTION [Suspect]
     Active Substance: DOXORUBICIN HYDROCHLORIDE
     Route: 042
  2. FUROSEMIDE. [Concomitant]
     Active Substance: FUROSEMIDE
  3. LANSOPRAZOLE. [Concomitant]
     Active Substance: LANSOPRAZOLE
  4. NYSTATIN. [Concomitant]
     Active Substance: NYSTATIN
  5. HYDROCORTISONE. [Suspect]
     Active Substance: HYDROCORTISONE
     Indication: ACUTE LYMPHOCYTIC LEUKAEMIA
     Route: 037
  6. AMLODIPINE [Concomitant]
     Active Substance: AMLODIPINE BESYLATE
  7. VINCRISTINE SULFATE. [Suspect]
     Active Substance: VINCRISTINE SULFATE
     Route: 042
  8. ASPARAGINASE (E.COLI) [Suspect]
     Active Substance: ASPARAGINASE
     Indication: ACUTE LYMPHOCYTIC LEUKAEMIA
     Route: 042
  9. ALLOPURINOL. [Concomitant]
     Active Substance: ALLOPURINOL
  10. CALCIUM [Concomitant]
     Active Substance: CALCIUM
  11. NIFEDIPINE. [Concomitant]
     Active Substance: NIFEDIPINE
  12. PIPERACILLIN AND TAZOBACTAM [Concomitant]
     Active Substance: PIPERACILLIN SODIUM\TAZOBACTAM SODIUM
  13. SENNOSIDES. [Concomitant]
     Active Substance: SENNOSIDES
  14. SULFAMETHOXAZOLE AND TRIMETHOPRIM [Concomitant]
     Active Substance: SULFAMETHOXAZOLE\TRIMETHOPRIM
  15. METHOTREXATE. [Suspect]
     Active Substance: METHOTREXATE
     Route: 037
  16. VINCRISTINE SULFATE. [Suspect]
     Active Substance: VINCRISTINE SULFATE
     Route: 042
  17. TOBRAMYCIN. [Concomitant]
     Active Substance: TOBRAMYCIN
  18. CYTARABINE INJECTION [Suspect]
     Active Substance: CYTARABINE
     Route: 037
  19. ACETAMINOPHEN. [Concomitant]
     Active Substance: ACETAMINOPHEN
  20. DIPHENHYDRAMINE. [Concomitant]
     Active Substance: DIPHENHYDRAMINE
  21. HYDROCORTISONE. [Concomitant]
     Active Substance: HYDROCORTISONE
     Route: 037
  22. LACTULOSE SYRUP [Concomitant]
     Active Substance: LACTULOSE
  23. METHOTREXATE. [Suspect]
     Active Substance: METHOTREXATE
     Indication: ACUTE LYMPHOCYTIC LEUKAEMIA
     Route: 042
  24. CHOLECALCIFEROL [Concomitant]
     Active Substance: CHOLECALCIFEROL
  25. EPINEPHRINE. [Concomitant]
     Active Substance: EPINEPHRINE
  26. ONDANSETRON [Concomitant]
     Active Substance: ONDANSETRON
  27. DIMENHYDRINATE. [Concomitant]
     Active Substance: DIMENHYDRINATE
  28. HEPARIN CALCIUM [Concomitant]
     Active Substance: HEPARIN CALCIUM
  29. LEVOFLOXACIN. [Concomitant]
     Active Substance: LEVOFLOXACIN
  30. METHYLPREDNISOLONE NOS [Concomitant]
     Active Substance: METHYLPREDNISOLONE
  31. POLYETHYLENE GLYCOL [Concomitant]
     Active Substance: POLYETHYLENE GLYCOLS
  32. CYTARABINE INJECTION [Suspect]
     Active Substance: CYTARABINE
     Route: 037

REACTIONS (1)
  - Aplastic anaemia [Unknown]
